FAERS Safety Report 5870480-3 (Version None)
Quarter: 2008Q3

REPORT INFORMATION
  Report Type: 
  Country: None (occurrence: None)
  Receive Date: 20080904
  Receipt Date: 20080619
  Transmission Date: 20090109
  Serious: No
  Sender: FDA-Public Use
  Company Number: US-BRISTOL-MYERS SQUIBB COMPANY-14234504

PATIENT
  Age: 58 Year
  Sex: Male

DRUGS (17)
  1. DEFINITY [Suspect]
     Indication: ECHOCARDIOGRAM
     Dates: start: 20080619
  2. IMDUR [Concomitant]
  3. NITROGLYCERIN [Concomitant]
  4. CRESTOR [Concomitant]
  5. HYDROCHLOROTHIAZIDE [Concomitant]
  6. LISINOPRIL [Concomitant]
  7. ZETIA [Concomitant]
  8. METOPROLOL TARTRATE [Concomitant]
  9. RANEXA [Concomitant]
  10. POTASSIUM CHLORIDE [Concomitant]
  11. BUMETANIDE [Concomitant]
  12. LYRICA [Concomitant]
  13. INSULIN [Concomitant]
  14. LANTUS [Concomitant]
  15. LEXAPRO [Concomitant]
  16. PRILOSEC [Concomitant]
  17. JANUMET [Concomitant]

REACTIONS (2)
  - BACK PAIN [None]
  - FLUSHING [None]
